FAERS Safety Report 5898727-8 (Version None)
Quarter: 2008Q3

REPORT INFORMATION
  Report Type: 
  Country: None (occurrence: None)
  Receive Date: 20080925
  Receipt Date: 20080508
  Transmission Date: 20090109
  Serious: No
  Sender: FDA-Public Use
  Company Number: A0726898A

PATIENT
  Age: 38 Year
  Sex: Female

DRUGS (5)
  1. BUPROPION HYDROCHLORIDE [Suspect]
     Indication: DEPRESSION
     Dosage: 300MG PER DAY
     Route: 048
     Dates: start: 20070101
  2. WELLBUTRIN SR [Suspect]
     Indication: DEPRESSION
     Dosage: 150MG THREE TIMES PER DAY
     Route: 048
     Dates: start: 20020101, end: 20050101
  3. WELLBUTRIN XL [Suspect]
     Indication: DEPRESSION
     Dosage: 300MG PER DAY
     Route: 048
     Dates: start: 20050101, end: 20070101
  4. EFFEXOR XR [Suspect]
     Indication: DEPRESSION
     Dosage: 75MG PER DAY
     Route: 048
     Dates: start: 20050101
  5. SYNTHROID [Concomitant]

REACTIONS (3)
  - DRUG INEFFECTIVE [None]
  - WEIGHT DECREASED [None]
  - WEIGHT INCREASED [None]
